FAERS Safety Report 17036116 (Version 3)
Quarter: 2020Q1

REPORT INFORMATION
  Report Type: Spontaneous
  Country: US (occurrence: US)
  Receive Date: 20191115
  Receipt Date: 20200210
  Transmission Date: 20200409
  Serious: No
  Sender: FDA-Public Use
  Company Number: US-PROCTER_AND_GAMBLE-GS19120628

PATIENT
  Age: 29 Year
  Sex: Male
  Weight: 88.44 kg

DRUGS (3)
  1. VICKS NYQUIL SEVERE COLD AND FLU [Suspect]
     Active Substance: ACETAMINOPHEN\DEXTROMETHORPHAN HYDROBROMIDE\DOXYLAMINE SUCCINATE\PHENYLEPHRINE
     Indication: NASOPHARYNGITIS
     Dosage: 30 MILLIGRAM, 1 ONLY
     Route: 048
     Dates: start: 20191027, end: 20191027
  2. VICKS NYQUIL SEVERE COLD AND FLU [Suspect]
     Active Substance: ACETAMINOPHEN\DEXTROMETHORPHAN HYDROBROMIDE\DOXYLAMINE SUCCINATE\PHENYLEPHRINE
     Indication: PAIN
  3. VICKS NYQUIL SEVERE COLD AND FLU [Suspect]
     Active Substance: ACETAMINOPHEN\DEXTROMETHORPHAN HYDROBROMIDE\DOXYLAMINE SUCCINATE\PHENYLEPHRINE
     Indication: LYMPHADENOPATHY

REACTIONS (25)
  - Syncope [Recovered/Resolved]
  - Fatigue [Unknown]
  - Speech disorder [Unknown]
  - Concussion [Recovering/Resolving]
  - Neutrophil count increased [Unknown]
  - Head injury [Unknown]
  - Anxiety [Not Recovered/Not Resolved]
  - Vertigo [Not Recovered/Not Resolved]
  - White blood cell count increased [Unknown]
  - Fall [Recovered/Resolved]
  - Lymphocyte count decreased [Unknown]
  - Neutrophil percentage increased [Unknown]
  - Skin laceration [Unknown]
  - Orthostatic hypotension [Unknown]
  - Urine analysis abnormal [Unknown]
  - Mean cell haemoglobin concentration increased [Unknown]
  - Red cell distribution width decreased [Unknown]
  - Eyelid disorder [Unknown]
  - Sudden onset of sleep [Recovered/Resolved]
  - Skin haemorrhage [Unknown]
  - Wound [Unknown]
  - Blood glucose increased [Unknown]
  - Feeling abnormal [Unknown]
  - Dehydration [Unknown]
  - Monocyte count increased [Unknown]

NARRATIVE: CASE EVENT DATE: 20191027
